FAERS Safety Report 7631892-0 (Version None)
Quarter: 2011Q3

REPORT INFORMATION
  Report Type: 
  Country: None (occurrence: None)
  Receive Date: 20110725
  Receipt Date: 20110502
  Transmission Date: 20111222
  Serious: Yes (Life-Threatening, Hospitalization)
  Sender: FDA-Public Use
  Company Number: US-BRISTOL-MYERS SQUIBB COMPANY-15717911

PATIENT
  Age: 54 Year
  Sex: Male

DRUGS (7)
  1. COUMADIN [Suspect]
     Indication: COAGULOPATHY
  2. KLOR-CON [Concomitant]
  3. CALCITRIOL [Concomitant]
  4. HUMALOG [Concomitant]
     Dosage: 1DF: 100UNITS
  5. RENVELA [Concomitant]
     Dosage: 1DF:3 TABS
  6. FENOFIBRATE [Concomitant]
     Dosage: 1DF: 1 CAPS
  7. LANTUS [Concomitant]
     Dosage: 1DF:100UNITS

REACTIONS (1)
  - INTERNATIONAL NORMALISED RATIO INCREASED [None]
